FAERS Safety Report 8591173-8 (Version None)
Quarter: 2012Q3

REPORT INFORMATION
  Report Type: 
  Country: None (occurrence: None)
  Receive Date: 20120813
  Receipt Date: 20120806
  Transmission Date: 20120928
  Serious: Yes (Other)
  Sender: FDA-Public Use
  Company Number: US-BAYER-2012-080337

PATIENT
  Sex: Female

DRUGS (2)
  1. FLEXERIL [Suspect]
     Dosage: UNK
     Route: 048
     Dates: start: 20120731
  2. MIRENA [Suspect]
     Dosage: 20 MCG/24HR, CONT
     Route: 015
     Dates: start: 20120729

REACTIONS (10)
  - DYSARTHRIA [None]
  - SWELLING FACE [None]
  - DYSGEUSIA [None]
  - DYSKINESIA [None]
  - AGEUSIA [None]
  - HYPOAESTHESIA [None]
  - DIZZINESS [None]
  - EYELID FUNCTION DISORDER [None]
  - DISTURBANCE IN ATTENTION [None]
  - CEREBROVASCULAR ACCIDENT [None]
